FAERS Safety Report 5118930-4 (Version None)
Quarter: 2006Q3

REPORT INFORMATION
  Report Type: 
  Country: None (occurrence: None)
  Receive Date: 20060927
  Receipt Date: 20060918
  Transmission Date: 20061208
  Serious: Yes (Other)
  Sender: FDA-Public Use
  Company Number: 2006092150

PATIENT
  Age: 75 Year
  Sex: Male
  Weight: 81.6475 kg

DRUGS (3)
  1. UNASYN [Suspect]
     Indication: PNEUMONIA
     Dosage: 50 ML (50 ML, 1 IN 1 D), INTRAVENOUS
     Route: 042
     Dates: start: 20040603, end: 20040606
  2. ZITHROMAX [Suspect]
  3. GENTAMICIN SULFATE [Suspect]
     Dates: start: 20040603

REACTIONS (5)
  - CARPAL TUNNEL SYNDROME [None]
  - CONTRAINDICATION TO MEDICAL TREATMENT [None]
  - CUBITAL TUNNEL SYNDROME [None]
  - DRUG HYPERSENSITIVITY [None]
  - NEUROPATHY [None]
